FAERS Safety Report 15434522 (Version 2)
Quarter: 2019Q4

REPORT INFORMATION
  Report Type: Spontaneous
  Country: US (occurrence: US)
  Receive Date: 20180927
  Receipt Date: 20191124
  Transmission Date: 20200122
  Serious: No
  Sender: FDA-Public Use
  Company Number: US-009507513-1809USA002840

PATIENT
  Age: 80 Year
  Sex: Female
  Weight: 54.42 kg

DRUGS (17)
  1. ATENOLOL. [Suspect]
     Active Substance: ATENOLOL
     Dosage: UNK
     Dates: start: 2018
  2. ASCORBIC ACID. [Concomitant]
     Active Substance: ASCORBIC ACID
     Indication: ROUTINE HEALTH MAINTENANCE
  3. FLUDROCORTISONE [Concomitant]
     Active Substance: FLUDROCORTISONE
     Indication: HYPOTENSION
  4. LEVOTHYROXINE SODIUM. [Concomitant]
     Active Substance: LEVOTHYROXINE SODIUM
     Dosage: 75 MICROGRAM, IN THE MORNING
  5. LIPITOR [Concomitant]
     Active Substance: ATORVASTATIN CALCIUM
  6. ORPHENADRINE [Suspect]
     Active Substance: ORPHENADRINE
     Indication: PARKINSON^S DISEASE
  7. MAGNESIUM (UNSPECIFIED) [Concomitant]
     Active Substance: MAGNESIUM
     Indication: ROUTINE HEALTH MAINTENANCE
  8. SINEMET [Suspect]
     Active Substance: CARBIDOPA\LEVODOPA
     Indication: PARKINSON^S DISEASE
     Dosage: 1.5 DOSAGE FORMS, THREE TIMES DAILY
     Route: 048
  9. NORTHERA [Suspect]
     Active Substance: DROXIDOPA
     Dosage: 300 MILLIGRAM, TID
     Dates: start: 2018, end: 2018
  10. AMANTADINE. [Suspect]
     Active Substance: AMANTADINE HYDROCHLORIDE
     Indication: PARKINSON^S DISEASE
     Dosage: UNK
  11. OMEPRAZOLE. [Concomitant]
     Active Substance: OMEPRAZOLE
     Dosage: 20 MG, IN THE MORNING
  12. VITAMIN D (UNSPECIFIED) [Concomitant]
     Active Substance: VITAMIN D NOS
     Indication: ROUTINE HEALTH MAINTENANCE
  13. BIOTIN [Concomitant]
     Active Substance: BIOTIN
     Indication: ROUTINE HEALTH MAINTENANCE
  14. PROPRANOLOL [Concomitant]
     Active Substance: PROPRANOLOL HYDROCHLORIDE
  15. ATENOLOL. [Suspect]
     Active Substance: ATENOLOL
     Indication: DRUG THERAPY
     Dosage: 25 MG, EVERY DAY IN THE EVENING
     Dates: end: 201807
  16. NORTHERA [Suspect]
     Active Substance: DROXIDOPA
     Dosage: 100 MILLIGRAM, TID
     Dates: start: 20180911, end: 20180915
  17. NORTHERA [Suspect]
     Active Substance: DROXIDOPA
     Dosage: 200 MILLIGRAM, TID
     Dates: start: 2018, end: 2018

REACTIONS (8)
  - Dizziness [Recovering/Resolving]
  - Somnolence [Unknown]
  - Feeling jittery [Unknown]
  - Vision blurred [Recovering/Resolving]
  - Asthenia [Unknown]
  - Drug ineffective [Unknown]
  - Blood pressure increased [Recovered/Resolved]
  - Dysarthria [Unknown]

NARRATIVE: CASE EVENT DATE: 20180801
